FAERS Safety Report 23631555 (Version 4)
Quarter: 2024Q2

REPORT INFORMATION
  Report Type: Report from Study
  Country: IT (occurrence: IT)
  Receive Date: 20240314
  Receipt Date: 20240612
  Transmission Date: 20240716
  Serious: Yes (Other)
  Sender: FDA-Public Use
  Company Number: IT-ROCHE-2684731

PATIENT
  Sex: Male

DRUGS (6)
  1. DOXORUBICIN HYDROCHLORIDE [Suspect]
     Active Substance: DOXORUBICIN HYDROCHLORIDE
     Indication: Lymphoma
     Dosage: FREQ:21 D;SIXTH CYCLE OF CHOP
     Route: 042
     Dates: start: 20200806
  2. VINCRISTINE SULFATE [Suspect]
     Active Substance: VINCRISTINE SULFATE
     Indication: Lymphoma
     Dosage: FREQ:21 D;SIXTH CYCLE OF CHOP
     Route: 042
     Dates: start: 20200806
  3. CYCLOPHOSPHAMIDE [Suspect]
     Active Substance: CYCLOPHOSPHAMIDE
     Indication: Lymphoma
     Dosage: FREQ:21 D;SIXTH CYCLE OF CHOP
     Route: 042
     Dates: start: 20200806
  4. PREDNISONE [Suspect]
     Active Substance: PREDNISONE
     Indication: Lymphoma
     Dosage: SIXTH CYCLE OF CHOP
     Route: 042
     Dates: start: 20200806, end: 20200810
  5. OBINUTUZUMAB [Suspect]
     Active Substance: OBINUTUZUMAB
     Indication: Follicular lymphoma
     Dosage: 1000 MG
     Route: 042
     Dates: start: 20200420
  6. PALMIDROL/POLYDATIN [Concomitant]
     Dosage: UNK
     Dates: start: 20220527

REACTIONS (4)
  - Neutropenia [Recovered/Resolved]
  - Neutropenia [Recovered/Resolved]
  - Leukopenia [Recovered/Resolved]
  - Urethritis [Recovered/Resolved]

NARRATIVE: CASE EVENT DATE: 20200727
